FAERS Safety Report 11658248 (Version 5)
Quarter: 2015Q4

REPORT INFORMATION
  Report Type: Report from Study
  Country: US (occurrence: US)
  Receive Date: 20151025
  Receipt Date: 20151116
  Transmission Date: 20160304
  Serious: Yes (Hospitalization)
  Sender: FDA-Public Use
  Company Number: US-AMGEN-USASL2015109725

PATIENT
  Age: 22 Year
  Sex: Female

DRUGS (1)
  1. ENBREL [Suspect]
     Active Substance: ETANERCEPT
     Indication: ANKYLOSING SPONDYLITIS
     Dosage: 50 MG, QWK
     Route: 065
     Dates: start: 20151013

REACTIONS (9)
  - Injection site erythema [Unknown]
  - Pyrexia [Recovered/Resolved]
  - Injection site reaction [Unknown]
  - Systemic lupus erythematosus rash [Unknown]
  - Cough [Not Recovered/Not Resolved]
  - Injection site pruritus [Unknown]
  - Headache [Recovered/Resolved]
  - Injection site swelling [Unknown]
  - Injection site warmth [Unknown]

NARRATIVE: CASE EVENT DATE: 2015
